FAERS Safety Report 15324820 (Version 1)
Quarter: 2018Q3

REPORT INFORMATION
  Report Type: Spontaneous
  Country: US (occurrence: US)
  Receive Date: 20180828
  Receipt Date: 20180828
  Transmission Date: 20181010
  Serious: Yes (Other)
  Sender: FDA-Public Use
  Company Number: US-B.I. PHARMACEUTICALS,INC./RIDGEFIELD-2018-BI-042525

PATIENT
  Age: 81 Year
  Sex: Male

DRUGS (2)
  1. PRAXBIND [Suspect]
     Active Substance: IDARUCIZUMAB
     Indication: PROCOAGULANT THERAPY
  2. PRAXBIND [Suspect]
     Active Substance: IDARUCIZUMAB
     Indication: RECTAL HAEMORRHAGE
     Route: 065

REACTIONS (2)
  - Coronary artery occlusion [Unknown]
  - Coronary artery disease [Unknown]
